FAERS Safety Report 9280143 (Version 4)
Quarter: 2014Q1

REPORT INFORMATION
  Report Type: Spontaneous
  Country: GB (occurrence: GB)
  Receive Date: 20130509
  Receipt Date: 20140228
  Transmission Date: 20141002
  Serious: Yes (Other)
  Sender: FDA-Public Use
  Company Number: GB-AMGEN-GBRSP2013030713

PATIENT
  Age: 46 Year
  Sex: Male

DRUGS (4)
  1. NEUPOGEN [Suspect]
     Indication: WHITE BLOOD CELL COUNT DECREASED
     Dosage: 34 MILLION UNITS, 2 TIMES/WK
     Route: 065
  2. CLOZARIL [Suspect]
     Indication: SCHIZOPHRENIA
     Dosage: 75 MG, 2/1 DAYS
     Route: 048
     Dates: start: 20090122
  3. TELAPREVIR [Concomitant]
     Indication: HEPATITIS C
     Dosage: UNK
     Dates: start: 20130322, end: 2013
  4. RIBAVIRIN [Concomitant]
     Indication: HEPATITIS C
     Dosage: 800 MG, UNK
     Dates: start: 20130122, end: 2013

REACTIONS (5)
  - Chronic hepatitis C [Not Recovered/Not Resolved]
  - White blood cell count decreased [Recovered/Resolved]
  - Neutrophil count increased [Unknown]
  - Platelet count decreased [Not Recovered/Not Resolved]
  - White blood cell count increased [Unknown]
